FAERS Safety Report 18342841 (Version 1)
Quarter: 2020Q4

REPORT INFORMATION
  Report Type: Spontaneous
  Country: US (occurrence: US)
  Receive Date: 20201004
  Receipt Date: 20201004
  Transmission Date: 20210113
  Serious: Yes (Life-Threatening)
  Sender: FDA-Public Use
  Company Number: None

PATIENT
  Age: 83 Year
  Sex: Male
  Weight: 89.4 kg

DRUGS (14)
  1. REMDESIVIR. [Suspect]
     Active Substance: REMDESIVIR
     Indication: COVID-19
     Route: 042
     Dates: start: 20200930, end: 20201003
  2. MONTELUKAST [Concomitant]
     Active Substance: MONTELUKAST SODIUM
     Dates: start: 20200929, end: 20201002
  3. TROSPIUM [Concomitant]
     Active Substance: TROSPIUM
     Dates: start: 20200929, end: 20201003
  4. METHYLPREDNISOLONE. [Concomitant]
     Active Substance: METHYLPREDNISOLONE
     Dates: start: 20200930
  5. ZOSYN [Concomitant]
     Active Substance: PIPERACILLIN SODIUM\TAZOBACTAM SODIUM
     Dates: start: 20200929, end: 20201003
  6. TIOTROPIUM [Concomitant]
     Active Substance: TIOTROPIUM
     Dates: start: 20200930, end: 20201003
  7. CARBIDOPA-LEVODOPA [Concomitant]
     Active Substance: CARBIDOPA\LEVODOPA
     Dates: start: 20200929
  8. HYDRALAZINE [Concomitant]
     Active Substance: HYDRALAZINE HYDROCHLORIDE
     Dates: start: 20200928, end: 20201003
  9. TAMSULOSIN [Concomitant]
     Active Substance: TAMSULOSIN
     Dates: start: 20200929, end: 20201003
  10. DILTIAZEM. [Concomitant]
     Active Substance: DILTIAZEM
     Dates: start: 20201002
  11. GUAIFENESIN. [Concomitant]
     Active Substance: GUAIFENESIN
     Dates: start: 20200930
  12. RASAGILINE. [Concomitant]
     Active Substance: RASAGILINE
     Dates: start: 20200929, end: 20201003
  13. METOPROLOL. [Concomitant]
     Active Substance: METOPROLOL
     Dates: start: 20200930, end: 20201001
  14. CYCLOBENZAPRINE. [Concomitant]
     Active Substance: CYCLOBENZAPRINE
     Dates: start: 20200929

REACTIONS (1)
  - Acute kidney injury [None]

NARRATIVE: CASE EVENT DATE: 20201003
